FAERS Safety Report 5935377-9 (Version None)
Quarter: 2008Q4

REPORT INFORMATION
  Report Type: 
  Country: None (occurrence: None)
  Receive Date: 20081029
  Receipt Date: 20081029
  Transmission Date: 20090506
  Serious: No
  Sender: FDA-Public Use
  Company Number: None

PATIENT
  Age: 66 Year
  Sex: Male

DRUGS (1)
  1. ULTRAVIST 300 [Suspect]
     Indication: COMPUTERISED TOMOGRAM
     Dosage: 100ML ONCE IV
     Route: 042
     Dates: start: 20081003

REACTIONS (3)
  - LIP SWELLING [None]
  - PRODUCT QUALITY ISSUE [None]
  - URTICARIA [None]
